FAERS Safety Report 22707493 (Version 5)
Quarter: 2023Q4

REPORT INFORMATION
  Report Type: Spontaneous
  Country: US (occurrence: US)
  Receive Date: 20230714
  Receipt Date: 20231012
  Transmission Date: 20240109
  Serious: No
  Sender: FDA-Public Use
  Company Number: US-PFIZER INC-202300245514

PATIENT
  Age: 13 Year
  Sex: Male
  Weight: 41.73 kg

DRUGS (2)
  1. GENOTROPIN [Suspect]
     Active Substance: SOMATROPIN
     Indication: Growth hormone deficiency
     Dosage: 2.2 MG, EVERY NIGHT
     Dates: start: 202305
  2. GENOTROPIN [Suspect]
     Active Substance: SOMATROPIN
     Dosage: UNK
     Dates: end: 202305

REACTIONS (6)
  - Device use error [Unknown]
  - Device difficult to use [Unknown]
  - Device delivery system issue [Unknown]
  - Device information output issue [Unknown]
  - Incorrect dose administered by device [Unknown]
  - Extra dose administered [Unknown]
